FAERS Safety Report 5217244-1 (Version None)
Quarter: 2007Q1

REPORT INFORMATION
  Report Type: 
  Country: None (occurrence: None)
  Receive Date: 20070122
  Receipt Date: 20070122
  Transmission Date: 20070707
  Serious: Yes (Hospitalization, Disabling)
  Sender: FDA-Public Use
  Company Number: None

PATIENT
  Age: 52 Year
  Sex: Male
  Weight: 90.7194 kg

DRUGS (1)
  1. DICLOFENAC SODIUM [Suspect]
     Indication: INFLAMMATION
     Dosage: (1) ONE PILL TWICE A DAY ORAL
     Route: 048
     Dates: start: 20070123, end: 20070125

REACTIONS (6)
  - BLINDNESS TRANSIENT [None]
  - DIZZINESS [None]
  - GAIT DISTURBANCE [None]
  - IMPAIRED DRIVING ABILITY [None]
  - VISUAL DISTURBANCE [None]
  - WEIGHT DECREASED [None]
